FAERS Safety Report 20683382 (Version 2)
Quarter: 2022Q2

REPORT INFORMATION
  Report Type: Spontaneous
  Country: JP (occurrence: JP)
  Receive Date: 20220407
  Receipt Date: 20220502
  Transmission Date: 20220721
  Serious: No
  Sender: FDA-Public Use
  Company Number: JP-GSKNCCC-Case-01460833_AE-56627

PATIENT
  Age: 63 Year
  Sex: Female

DRUGS (1)
  1. SOTROVIMAB [Suspect]
     Active Substance: SOTROVIMAB
     Dosage: 500 MG, SINGLE
     Dates: start: 20220401

REACTIONS (2)
  - Product storage error [Unknown]
  - Off label use [Unknown]
